FAERS Safety Report 4701372-0 (Version None)
Quarter: 2005Q2

REPORT INFORMATION
  Report Type: 
  Country: None (occurrence: None)
  Receive Date: 20050627
  Receipt Date: 20050620
  Transmission Date: 20051028
  Serious: Yes (Life-Threatening)
  Sender: FDA-Public Use
  Company Number: 2005-06-1278

PATIENT
  Age: 71 Year
  Sex: Male
  Weight: 99 kg

DRUGS (2)
  1. ASMANEX                 (MOMETASONE FUROATE) POWDER FOR INHALATION [Suspect]
     Indication: ASTHMA
     Dosage: 400 MCG BID INHALATION
     Route: 055
  2. OXIS                  (EFORMOTEROL FUMARATE) [Concomitant]
     Route: 055

REACTIONS (2)
  - DYSPHONIA [None]
  - MUSCLE SPASMS [None]
